FAERS Safety Report 19001003 (Version 1)
Quarter: 2021Q1

REPORT INFORMATION
  Report Type: Spontaneous
  Country: US (occurrence: US)
  Receive Date: 20210311
  Receipt Date: 20210311
  Transmission Date: 20210420
  Serious: No
  Sender: FDA-Public Use
  Company Number: US-GLENMARK PHARMACEUTICALS-2020GMK050068

PATIENT

DRUGS (1)
  1. PIRNUO [Suspect]
     Active Substance: MUPIROCIN CALCIUM
     Indication: NASAL DISORDER
     Dosage: UNK
     Route: 065

REACTIONS (1)
  - Product dispensing error [Unknown]
